FAERS Safety Report 6222135-3 (Version None)
Quarter: 2009Q2

REPORT INFORMATION
  Report Type: 
  Country: None (occurrence: None)
  Receive Date: 20090611
  Receipt Date: 20090602
  Transmission Date: 20091009
  Serious: Yes (Life-Threatening, Hospitalization)
  Sender: FDA-Public Use
  Company Number: JP-ASTRAZENECA-2009SE02182

PATIENT
  Age: 60 Year
  Sex: Male

DRUGS (2)
  1. ZOLADEX [Suspect]
     Indication: PROSTATE CANCER
     Route: 058
  2. TAXOTERE [Suspect]

REACTIONS (1)
  - LIVER DISORDER [None]
